FAERS Safety Report 24829811 (Version 1)
Quarter: 2025Q1

REPORT INFORMATION
  Report Type: Spontaneous
  Country: PT (occurrence: PT)
  Receive Date: 20250110
  Receipt Date: 20250110
  Transmission Date: 20250408
  Serious: Yes (Other)
  Sender: VIIV
  Company Number: PT-ViiV Healthcare-PT2025ViiV Healthcare001177

PATIENT

DRUGS (9)
  1. LAMIVUDINE [Suspect]
     Active Substance: LAMIVUDINE
     Indication: HIV infection
  2. ABACAVIR [Suspect]
     Active Substance: ABACAVIR
     Indication: HIV infection
  3. DOLUTEGRAVIR [Suspect]
     Active Substance: DOLUTEGRAVIR
     Indication: HIV infection
  4. ZIDOVUDINE [Suspect]
     Active Substance: ZIDOVUDINE
     Indication: HIV infection
  5. DIDANOSINE [Suspect]
     Active Substance: DIDANOSINE
     Indication: HIV infection
  6. EFAVIRENZ [Suspect]
     Active Substance: EFAVIRENZ
     Indication: HIV infection
  7. NEVIRAPINE [Suspect]
     Active Substance: NEVIRAPINE
     Indication: HIV infection
  8. NELFINAVIR [Suspect]
     Active Substance: NELFINAVIR
     Indication: HIV infection
  9. SAQUINAVIR [Suspect]
     Active Substance: SAQUINAVIR
     Indication: HIV infection

REACTIONS (5)
  - Eyelid ptosis [Unknown]
  - Exophthalmos [Unknown]
  - Strabismus [Unknown]
  - IIIrd nerve paresis [Unknown]
  - Lipodystrophy acquired [Unknown]
